FAERS Safety Report 7908795 (Version 2)
Quarter: 2025Q3

REPORT INFORMATION
  Report Type: Spontaneous
  Country: EU (occurrence: EU)
  Receive Date: 20110421
  Receipt Date: 20250731
  Transmission Date: 20251021
  Serious: Yes (Death, Life-Threatening)
  Sender: PFIZER
  Company Number: EU-PFIZER INC-2011082821

PATIENT
  Age: 1 Day
  Sex: Male
  Weight: 0.82 kg

DRUGS (9)
  1. DOXORUBICIN HYDROCHLORIDE [Suspect]
     Active Substance: DOXORUBICIN HYDROCHLORIDE
     Indication: Osteosarcoma
     Route: 064
     Dates: start: 200612
  2. DOXORUBICIN HYDROCHLORIDE [Suspect]
     Active Substance: DOXORUBICIN HYDROCHLORIDE
     Route: 064
     Dates: start: 200701
  3. CISPLATIN [Suspect]
     Active Substance: CISPLATIN
     Indication: Osteosarcoma
     Route: 064
     Dates: start: 200612
  4. IFOSFAMIDE [Suspect]
     Active Substance: IFOSFAMIDE
     Indication: Osteosarcoma
     Route: 064
     Dates: start: 200612
  5. IFOSFAMIDE [Suspect]
     Active Substance: IFOSFAMIDE
     Route: 064
     Dates: start: 200701
  6. SOLU-MEDROL [Concomitant]
     Active Substance: METHYLPREDNISOLONE SODIUM SUCCINATE
     Route: 064
  7. MESNA [Concomitant]
     Active Substance: MESNA
     Indication: Prophylaxis
     Route: 064
  8. NEULASTA [Concomitant]
     Active Substance: PEGFILGRASTIM
     Route: 064
  9. ONDANSETRON [Concomitant]
     Active Substance: ONDANSETRON
     Route: 064

REACTIONS (12)
  - Maternal exposure during pregnancy [Fatal]
  - Foetal exposure during pregnancy [Fatal]
  - Foetal growth restriction [Fatal]
  - Oligohydramnios [Fatal]
  - Acute kidney injury [Fatal]
  - Neonatal cardiac failure [Fatal]
  - Anaemia neonatal [Fatal]
  - Neutropenia neonatal [Fatal]
  - Thrombocytopenia neonatal [Fatal]
  - Left ventricular failure [Fatal]
  - Neonatal anuria [Fatal]
  - Leukopenia neonatal [Fatal]
